FAERS Safety Report 8008697-4 (Version None)
Quarter: 2011Q4

REPORT INFORMATION
  Report Type: 
  Country: None (occurrence: None)
  Receive Date: 20111227
  Receipt Date: 20111214
  Transmission Date: 20120403
  Serious: Yes (Hospitalization, Disabling)
  Sender: FDA-Public Use
  Company Number: US-MERCK-1106USA03115

PATIENT
  Age: 59 Year
  Sex: Female
  Weight: 68 kg

DRUGS (13)
  1. NEURONTIN [Concomitant]
     Route: 065
     Dates: start: 19990601
  2. DONNATAL [Concomitant]
     Route: 065
     Dates: start: 19990401
  3. VITAMINS (UNSPECIFIED) [Concomitant]
     Route: 065
  4. LOMOTIL [Concomitant]
     Route: 065
     Dates: start: 19990401
  5. ALENDRONATE SODIUM [Suspect]
     Route: 048
     Dates: start: 20081101
  6. IMITREX [Concomitant]
     Route: 065
     Dates: start: 19991101, end: 20060101
  7. FOSAMAX [Suspect]
     Indication: OSTEOPENIA
     Route: 048
     Dates: start: 20020713, end: 20090701
  8. VERAPAMIL [Concomitant]
     Route: 065
     Dates: start: 20021001
  9. ZOLOFT [Concomitant]
     Route: 065
     Dates: start: 19990501
  10. GLEEVEC [Concomitant]
     Route: 065
     Dates: start: 19991201
  11. KLONOPIN [Concomitant]
     Route: 065
     Dates: start: 19990401
  12. PRILOSEC [Concomitant]
     Route: 065
     Dates: start: 19921001
  13. PATANOL [Concomitant]
     Route: 065
     Dates: start: 19920901

REACTIONS (26)
  - VISION BLURRED [None]
  - VITAMIN D DEFICIENCY [None]
  - MITRAL VALVE CALCIFICATION [None]
  - DRY MOUTH [None]
  - JOINT HYPEREXTENSION [None]
  - MUSCLE SPASMS [None]
  - SCIATICA [None]
  - DYSPHAGIA [None]
  - FALL [None]
  - DYSPHONIA [None]
  - NON-CARDIAC CHEST PAIN [None]
  - SLEEP APNOEA SYNDROME [None]
  - PERICARDIAL EFFUSION [None]
  - JOINT EFFUSION [None]
  - SWELLING [None]
  - HYPERTRIGLYCERIDAEMIA [None]
  - OSTEOPOROSIS [None]
  - DERMATITIS [None]
  - UPPER RESPIRATORY TRACT INFECTION [None]
  - FEMUR FRACTURE [None]
  - EYELID OEDEMA [None]
  - PALPITATIONS [None]
  - LOW TURNOVER OSTEOPATHY [None]
  - BREAST NEOPLASM [None]
  - BURSITIS [None]
  - NASAL SEPTUM DEVIATION [None]
